FAERS Safety Report 5129322-6 (Version None)
Quarter: 2006Q4

REPORT INFORMATION
  Report Type: 
  Country: None (occurrence: None)
  Receive Date: 20061011
  Receipt Date: 20060928
  Transmission Date: 20070319
  Serious: Yes (Death, Hospitalization)
  Sender: FDA-Public Use
  Company Number: 009-C5013-06090695

PATIENT
  Age: 50 Year
  Sex: Female
  Weight: 44 kg

DRUGS (2)
  1. CC-5013 (LENALIDOMIDE) (CAPSULES) REVLIMID [Suspect]
     Indication: MULTIPLE MYELOMA
     Dosage: 5 MG, 1 IN 2 D, ORAL
     Route: 048
     Dates: start: 20060816, end: 20060830
  2. CC-5013 (LENALIDOMIDE) (CAPSULES) REVLIMID [Suspect]
     Indication: MULTIPLE MYELOMA
     Dosage: 5 MG, 1 IN 2 D, ORAL
     Route: 048
     Dates: start: 20060830, end: 20060908

REACTIONS (12)
  - BLOOD CREATINE INCREASED [None]
  - CARDIAC FAILURE [None]
  - EPISTAXIS [None]
  - FEBRILE NEUTROPENIA [None]
  - HAEMOGLOBIN DECREASED [None]
  - INFECTION [None]
  - MOUTH HAEMORRHAGE [None]
  - MUCOSAL HAEMORRHAGE [None]
  - PAIN [None]
  - SEPSIS [None]
  - THROMBOCYTOPENIA [None]
  - WHITE BLOOD CELL COUNT DECREASED [None]
